FAERS Safety Report 11532108 (Version 1)
Quarter: 2015Q3

REPORT INFORMATION
  Report Type: Spontaneous
  Country: US (occurrence: US)
  Receive Date: 20150903
  Receipt Date: 20150903
  Transmission Date: 20151125
  Serious: No
  Sender: FDA-Public Use
  Company Number: US-ELI_LILLY_AND_COMPANY-US201112003816

PATIENT
  Sex: Male

DRUGS (3)
  1. LANTUS [Concomitant]
     Active Substance: INSULIN GLARGINE
     Dosage: 25U NOON, 10U PM
  2. HUMALOG [Suspect]
     Active Substance: INSULIN LISPRO
     Indication: TYPE 1 DIABETES MELLITUS
     Dosage: 10U AM, 10U PM, 5 U HS
  3. HUMALOG [Suspect]
     Active Substance: INSULIN LISPRO
     Dosage: 10U AM, 10U PM, 5 U HS

REACTIONS (2)
  - Night sweats [Unknown]
  - Blood glucose decreased [Unknown]
